FAERS Safety Report 8479817-2 (Version None)
Quarter: 2012Q2

REPORT INFORMATION
  Report Type: 
  Country: None (occurrence: None)
  Receive Date: 20120629
  Receipt Date: 20120626
  Transmission Date: 20120825
  Serious: Yes (Hospitalization)
  Sender: FDA-Public Use
  Company Number: US-ELI_LILLY_AND_COMPANY-US201206009060

PATIENT
  Sex: Female

DRUGS (1)
  1. HUMATROPE [Suspect]
     Dosage: UNK

REACTIONS (1)
  - PNEUMONIA [None]
